FAERS Safety Report 5723024-0 (Version None)
Quarter: 2008Q2

REPORT INFORMATION
  Report Type: 
  Country: None (occurrence: None)
  Receive Date: 20080428
  Receipt Date: 20080428
  Transmission Date: 20081010
  Serious: No
  Sender: FDA-Public Use
  Company Number: None

PATIENT
  Age: 64 Year
  Sex: Male

DRUGS (1)
  1. SUCRALFATE [Suspect]
     Dosage: ONE TABLET BEFORE MEALS AND AT BEDTIME.
     Dates: start: 20080405, end: 20080409

REACTIONS (6)
  - ABDOMINAL PAIN [None]
  - GASTRIC DISORDER [None]
  - HYPERHIDROSIS [None]
  - NAUSEA [None]
  - PHARMACEUTICAL PRODUCT COMPLAINT [None]
  - TREMOR [None]
